FAERS Safety Report 9427487 (Version 1)
Quarter: 2013Q3

REPORT INFORMATION
  Report Type: Spontaneous
  Country: US (occurrence: US)
  Receive Date: 20130730
  Receipt Date: 20130730
  Transmission Date: 20140515
  Serious: No
  Sender: FDA-Public Use
  Company Number: US-ABBOTT-12P-163-0974963-00

PATIENT
  Age: 60 Year
  Sex: Female

DRUGS (6)
  1. NIASPAN (COATED) [Suspect]
     Indication: PRODUCT USED FOR UNKNOWN INDICATION
  2. UNSPECIFIED INGREDIENT [Suspect]
     Indication: HYPERTENSION
  3. AMBIEN [Suspect]
     Indication: PRODUCT USED FOR UNKNOWN INDICATION
  4. MICARDIS [Suspect]
     Indication: PRODUCT USED FOR UNKNOWN INDICATION
  5. SEROQUEL [Suspect]
     Indication: PRODUCT USED FOR UNKNOWN INDICATION
  6. BENADRYL [Suspect]
     Indication: PRODUCT USED FOR UNKNOWN INDICATION

REACTIONS (9)
  - Pollakiuria [Unknown]
  - Dehydration [Unknown]
  - Micturition disorder [Unknown]
  - Somnambulism [Unknown]
  - Poor quality sleep [Unknown]
  - Headache [Unknown]
  - Erythema [Unknown]
  - Insomnia [Unknown]
  - Pruritus [Unknown]
